FAERS Safety Report 19442541 (Version 1)
Quarter: 2021Q2

REPORT INFORMATION
  Report Type: Spontaneous
  Country: US (occurrence: US)
  Receive Date: 20210619
  Receipt Date: 20210619
  Transmission Date: 20210717
  Serious: No
  Sender: FDA-Public Use
  Company Number: None

PATIENT
  Age: 72 Year
  Sex: Female
  Weight: 85.2 kg

DRUGS (13)
  1. GABAPENTIN. [Concomitant]
     Active Substance: GABAPENTIN
  2. LEVOTHYROXINE. [Concomitant]
     Active Substance: LEVOTHYROXINE
  3. LOSARTAN. [Concomitant]
     Active Substance: LOSARTAN
  4. BACLOFEN. [Concomitant]
     Active Substance: BACLOFEN
  5. LINZESS [Concomitant]
     Active Substance: LINACLOTIDE
  6. ZYRTEC [Concomitant]
     Active Substance: CETIRIZINE HYDROCHLORIDE
  7. DEXAMETHASONE. [Suspect]
     Active Substance: DEXAMETHASONE
     Indication: PLASMA CELL MYELOMA
     Dosage: ?          OTHER FREQUENCY:WEEKLY;?
     Route: 048
     Dates: start: 20210520, end: 20210615
  8. FAMOTIDINE. [Concomitant]
     Active Substance: FAMOTIDINE
  9. VITAMIN B12 [Concomitant]
     Active Substance: CYANOCOBALAMIN
  10. ASPIRIN. [Concomitant]
     Active Substance: ASPIRIN
  11. PROTONIX [Concomitant]
     Active Substance: PANTOPRAZOLE SODIUM
  12. ATORVASTATIN [Concomitant]
     Active Substance: ATORVASTATIN
  13. ESTRACE [Concomitant]
     Active Substance: ESTRADIOL

REACTIONS (1)
  - Abdominal pain upper [None]

NARRATIVE: CASE EVENT DATE: 20210615
